FAERS Safety Report 19855129 (Version 1)
Quarter: 2021Q3

REPORT INFORMATION
  Report Type: Spontaneous
  Country: US (occurrence: US)
  Receive Date: 20210918
  Receipt Date: 20210918
  Transmission Date: 20211014
  Serious: Yes (Disabling, Other)
  Sender: FDA-Public Use
  Company Number: None

PATIENT
  Age: 47 Year
  Sex: Female
  Weight: 83.25 kg

DRUGS (7)
  1. BETAMETHASONE. [Suspect]
     Active Substance: BETAMETHASONE
  2. TRIAMCINOLONE [Suspect]
     Active Substance: TRIAMCINOLONE
  3. CLOBETASOL [Suspect]
     Active Substance: CLOBETASOL
  4. KENALOG [Suspect]
     Active Substance: TRIAMCINOLONE ACETONIDE
  5. PREDNISONE. [Suspect]
     Active Substance: PREDNISONE
  6. METHIMAZOLE. [Concomitant]
     Active Substance: METHIMAZOLE
  7. METHOTREXATE. [Concomitant]
     Active Substance: METHOTREXATE

REACTIONS (27)
  - Pain [None]
  - Insomnia [None]
  - Dermatitis allergic [None]
  - Fatigue [None]
  - Skin weeping [None]
  - Skin exfoliation [None]
  - Skin swelling [None]
  - Alopecia [None]
  - Eczema [None]
  - Erythema [None]
  - Malaise [None]
  - Bedridden [None]
  - Product communication issue [None]
  - Pruritus [None]
  - Condition aggravated [None]
  - Skin hypertrophy [None]
  - Temperature regulation disorder [None]
  - Depression [None]
  - Skin lesion [None]
  - Hypersensitivity [None]
  - Eosinophilia [None]
  - Skin burning sensation [None]
  - Product prescribing issue [None]
  - Rash [None]
  - Weight decreased [None]
  - Anxiety [None]
  - Staphylococcal infection [None]

NARRATIVE: CASE EVENT DATE: 20191018
